FAERS Safety Report 19815479 (Version 1)
Quarter: 2021Q3

REPORT INFORMATION
  Report Type: Spontaneous
  Country: CA (occurrence: CA)
  Receive Date: 20210909
  Receipt Date: 20210909
  Transmission Date: 20211014
  Serious: Yes (Death)
  Sender: FDA-Public Use
  Company Number: CA-TEVA-2021-CA-1949450

PATIENT
  Age: 29 Year
  Sex: Male
  Weight: 122 kg

DRUGS (8)
  1. ALCOHOL. [Suspect]
     Active Substance: ALCOHOL
     Route: 065
  2. OLANZAPINE. [Suspect]
     Active Substance: OLANZAPINE
     Route: 065
  3. COCAINE [Suspect]
     Active Substance: COCAINE
     Route: 065
  4. METHAMPHETAMINE [Suspect]
     Active Substance: METHAMPHETAMINE
     Route: 065
  5. NALOXONE [Suspect]
     Active Substance: NALOXONE
     Route: 065
  6. CODEINE [Suspect]
     Active Substance: CODEINE
     Route: 065
  7. FENTANYL. [Suspect]
     Active Substance: FENTANYL
     Route: 065
  8. GABAPENTIN. [Suspect]
     Active Substance: GABAPENTIN
     Route: 065

REACTIONS (4)
  - Blood ethanol [Fatal]
  - Postmortem blood drug level [Fatal]
  - Opiates positive [Fatal]
  - Amphetamines positive [Fatal]
